FAERS Safety Report 5690976-7 (Version None)
Quarter: 2008Q2

REPORT INFORMATION
  Report Type: 
  Country: None (occurrence: None)
  Receive Date: 20080401
  Receipt Date: 20080325
  Transmission Date: 20081010
  Serious: Yes (Hospitalization, Other)
  Sender: FDA-Public Use
  Company Number: US-ELI_LILLY_AND_COMPANY-US200803005895

PATIENT
  Sex: Female
  Weight: 132.43 kg

DRUGS (2)
  1. BYETTA [Suspect]
     Dosage: 5 UG, 2/D
     Route: 058
     Dates: start: 20070101, end: 20070101
  2. BYETTA [Suspect]
     Dosage: 10 UG, 2/D
     Route: 058
     Dates: start: 20070101, end: 20080101

REACTIONS (6)
  - ABDOMINAL PAIN [None]
  - ARTERIOVENOUS FISTULA ANEURYSM [None]
  - CONSTIPATION [None]
  - PNEUMONIA [None]
  - RENAL FAILURE [None]
  - WEIGHT DECREASED [None]
